FAERS Safety Report 22153900 (Version 4)
Quarter: 2023Q2

REPORT INFORMATION
  Report Type: Spontaneous
  Country: US (occurrence: US)
  Receive Date: 20230330
  Receipt Date: 20230502
  Transmission Date: 20230721
  Serious: No
  Sender: FDA-Public Use
  Company Number: US-UNITED THERAPEUTICS-UNT-2023-008695

PATIENT
  Age: 50 Year
  Sex: Male
  Weight: 158.73 kg

DRUGS (10)
  1. REMODULIN [Suspect]
     Active Substance: TREPROSTINIL
     Indication: Pulmonary arterial hypertension
     Dosage: 0.002 ?G/KG (PRE-FILLED WITH 3 ML/CASSETTE; RATE OF 19 MCL/HOUR), CONTINUING
     Route: 058
     Dates: start: 202303
  2. REMODULIN [Suspect]
     Active Substance: TREPROSTINIL
     Dosage: UNK, CONTINUING
     Route: 058
     Dates: start: 20230322
  3. REMODULIN [Suspect]
     Active Substance: TREPROSTINIL
     Indication: Pulmonary arterial hypertension
     Dosage: 0.0041 ?G/KG (PHARMACY FILLED WITH 3 ML/CASSETTE, PUMP RATE OF 16 MCL/HOUR), CONTINUING
     Route: 058
  4. REMODULIN [Suspect]
     Active Substance: TREPROSTINIL
     Dosage: 0.010 ?G/KG (PHARMACY FILLED WITH 3 ML/CASSETTE, RATE OF 38 MCL/HOUR), CONTINUING
     Route: 058
  5. REMODULIN [Suspect]
     Active Substance: TREPROSTINIL
     Dosage: UNK, CONTINUING
     Route: 058
  6. REMODULIN [Suspect]
     Active Substance: TREPROSTINIL
     Indication: Pulmonary arterial hypertension
     Dosage: 0.010 ?G/KG (PHARMACY PRE-FILLED WITH 3 ML PER CASSETTE; AT A PUMP RATE OF 19 MCL PER HOUR), CONTINU
     Route: 058
  7. REMODULIN [Suspect]
     Active Substance: TREPROSTINIL
     Dosage: 0.020 ?G/KG (REMODULIN REMUNITY PHARMACY FILLED WITH 3 ML PER CASSETTE; REMUNITY PUMP RATE 38 MCL PE
     Route: 058
  8. REMODULIN [Suspect]
     Active Substance: TREPROSTINIL
     Dosage: UNK, CONTINUING
     Route: 058
  9. SILDENAFIL [Concomitant]
     Active Substance: SILDENAFIL
     Indication: Product used for unknown indication
     Dosage: UNK
     Route: 065
  10. LETAIRIS [Concomitant]
     Active Substance: AMBRISENTAN
     Indication: Product used for unknown indication
     Dosage: UNK
     Route: 065

REACTIONS (14)
  - Tremor [Unknown]
  - Oedema peripheral [Unknown]
  - Dyspnoea exertional [Unknown]
  - Infusion site pain [Unknown]
  - Infusion site discolouration [Unknown]
  - Infusion site infection [Unknown]
  - Headache [Unknown]
  - Pain in jaw [Unknown]
  - Jaw disorder [Unknown]
  - Infusion site pruritus [Unknown]
  - Infusion site extravasation [Unknown]
  - Skin burning sensation [Unknown]
  - Toothache [Unknown]
  - Oropharyngeal pain [Unknown]

NARRATIVE: CASE EVENT DATE: 20230301
